FAERS Safety Report 9659128 (Version 2)
Quarter: 2013Q4

REPORT INFORMATION
  Report Type: Spontaneous
  Country: US (occurrence: US)
  Receive Date: 20131031
  Receipt Date: 20131118
  Transmission Date: 20140711
  Serious: No
  Sender: FDA-Public Use
  Company Number: US-B.I. PHARMACEUTICALS,INC./RIDGEFIELD-2013-BI-33797BP

PATIENT
  Age: 72 Year
  Sex: Female
  Weight: 52 kg

DRUGS (8)
  1. PRADAXA [Suspect]
     Indication: ATRIAL FIBRILLATION
     Dosage: 300 MG
     Route: 048
     Dates: start: 20120201
  2. RHYTHMOL [Concomitant]
     Indication: ATRIAL FIBRILLATION
     Route: 048
     Dates: start: 2012
  3. AMLODIPINE [Concomitant]
     Indication: HYPERTENSION
     Dosage: 5 MG
     Route: 048
     Dates: start: 201201
  4. DIOVAN [Concomitant]
     Indication: HYPERTENSION
     Dosage: 320 MCG
     Route: 048
     Dates: start: 201201
  5. LEVOTHYROXINE [Concomitant]
     Indication: HYPOTHYROIDISM
     Dosage: 1.25 MG
     Route: 048
     Dates: start: 2000
  6. PREMARIN [Concomitant]
     Indication: MENOPAUSE
     Dates: start: 1977
  7. DIAZEPAM [Concomitant]
     Indication: ANXIETY
     Route: 048
     Dates: start: 2003
  8. PENTAZOCINE-NALOXONE [Concomitant]
     Indication: MIGRAINE
     Dosage: STRENGTH: 50 MG-0.5 MG;
     Route: 048

REACTIONS (7)
  - Pruritus generalised [Recovered/Resolved]
  - Wheezing [Not Recovered/Not Resolved]
  - Swelling face [Not Recovered/Not Resolved]
  - Swollen tongue [Not Recovered/Not Resolved]
  - Atrial fibrillation [Unknown]
  - Haemorrhage [Not Recovered/Not Resolved]
  - Laceration [Not Recovered/Not Resolved]
